FAERS Safety Report 23383320 (Version 3)
Quarter: 2024Q1

REPORT INFORMATION
  Report Type: Spontaneous
  Country: US (occurrence: US)
  Receive Date: 20240109
  Receipt Date: 20240201
  Transmission Date: 20240409
  Serious: No
  Sender: FDA-Public Use
  Company Number: US-SA-SAC20231228000841

PATIENT
  Sex: Female
  Weight: 127 kg

DRUGS (8)
  1. DUPIXENT [Suspect]
     Active Substance: DUPILUMAB
     Indication: Nasal polyps
     Dosage: 300 MG, QOW
     Route: 058
  2. DUPIXENT [Suspect]
     Active Substance: DUPILUMAB
     Indication: Rhinitis allergic
     Dosage: UNK
     Dates: start: 202307
  3. DUPIXENT [Suspect]
     Active Substance: DUPILUMAB
     Dosage: UNK
     Dates: start: 20231208
  4. XYZAL [Concomitant]
     Active Substance: LEVOCETIRIZINE DIHYDROCHLORIDE
  5. FLUTICASONE PROPIONATE [Concomitant]
     Active Substance: FLUTICASONE PROPIONATE
  6. IBUPROFEN [Concomitant]
     Active Substance: IBUPROFEN
  7. BUDESONIDE [Concomitant]
     Active Substance: BUDESONIDE
  8. VALTREX [Concomitant]
     Active Substance: VALACYCLOVIR HYDROCHLORIDE
     Dosage: UNK

REACTIONS (9)
  - Rash pruritic [Unknown]
  - Skin swelling [Unknown]
  - Nasal polyps [Unknown]
  - Condition aggravated [Unknown]
  - Swelling [Unknown]
  - Rash macular [Unknown]
  - Injection site vesicles [Unknown]
  - Injection site rash [Unknown]
  - Product use in unapproved indication [Unknown]
